FAERS Safety Report 8827735 (Version 4)
Quarter: 2012Q4

REPORT INFORMATION
  Report Type: Report from Study
  Country: JP (occurrence: JP)
  Receive Date: 20121005
  Receipt Date: 20121128
  Transmission Date: 20130627
  Serious: Yes (Hospitalization)
  Sender: FDA-Public Use
  Company Number: JP-JNJFOC-20121000526

PATIENT
  Age: 69 Year
  Sex: Female
  Weight: 53 kg

DRUGS (17)
  1. SIMPONI [Suspect]
     Indication: RHEUMATOID ARTHRITIS
     Route: 058
     Dates: start: 20120910
  2. SIMPONI [Suspect]
     Indication: RHEUMATOID ARTHRITIS
     Route: 058
     Dates: start: 20120813
  3. BUCILLAMINE [Suspect]
     Indication: RHEUMATOID ARTHRITIS
     Route: 048
     Dates: start: 2009
  4. TACROLIMUS HYDRATE [Suspect]
     Indication: RHEUMATOID ARTHRITIS
     Dates: start: 20121005
  5. TACROLIMUS HYDRATE [Suspect]
     Indication: RHEUMATOID ARTHRITIS
     Dates: start: 20091130, end: 20101004
  6. PREDONINE [Concomitant]
     Indication: RHEUMATOID ARTHRITIS
  7. CELECOX [Concomitant]
     Indication: RHEUMATOID ARTHRITIS
     Route: 048
  8. LOXONIN [Concomitant]
     Indication: RHEUMATOID ARTHRITIS
     Route: 048
  9. METHYCOBAL [Concomitant]
     Indication: RHEUMATOID ARTHRITIS
     Route: 048
  10. SELBEX [Concomitant]
     Indication: PROPHYLAXIS
     Route: 048
  11. ZANTAC [Concomitant]
     Indication: PROPHYLAXIS
     Route: 048
  12. BONOTEO [Concomitant]
     Indication: OSTEOPOROSIS
     Route: 048
  13. ISCOTIN [Concomitant]
     Indication: PROPHYLAXIS
     Route: 048
  14. ONON [Concomitant]
     Indication: ASTHMA
     Route: 048
  15. THEODUR [Concomitant]
     Indication: ASTHMA
     Route: 048
  16. CLARITH [Concomitant]
     Route: 048
  17. BONALON [Concomitant]
     Indication: OSTEOPOROSIS
     Route: 048

REACTIONS (1)
  - Device related infection [Recovering/Resolving]
